FAERS Safety Report 17331260 (Version 1)
Quarter: 2020Q1

REPORT INFORMATION
  Report Type: Spontaneous
  Country: US (occurrence: US)
  Receive Date: 20200127
  Receipt Date: 20200127
  Transmission Date: 20200409
  Serious: Yes (Disabling)
  Sender: FDA-Public Use
  Company Number: None

PATIENT
  Age: 34 Year
  Sex: Female
  Weight: 90 kg

DRUGS (5)
  1. AIMOVIG [Suspect]
     Active Substance: ERENUMAB-AOOE
     Indication: MIGRAINE
     Dosage: ?          QUANTITY:1 INJECTION(S);OTHER FREQUENCY:MONTHLY;?
     Route: 030
     Dates: start: 20191226, end: 20200127
  2. ONDANSETRON [Concomitant]
     Active Substance: ONDANSETRON
  3. ADVIL [Concomitant]
     Active Substance: IBUPROFEN
  4. MIRENA [Concomitant]
     Active Substance: LEVONORGESTREL
  5. TRIGGER POINT INJECTIONS [Concomitant]
     Active Substance: UNSPECIFIED INGREDIENT

REACTIONS (9)
  - Rosacea [None]
  - Anxiety [None]
  - Muscle spasms [None]
  - Suicidal ideation [None]
  - Musculoskeletal stiffness [None]
  - Nausea [None]
  - Abdominal pain upper [None]
  - Migraine [None]
  - Vomiting [None]

NARRATIVE: CASE EVENT DATE: 20200127
